FAERS Safety Report 26141105 (Version 1)
Quarter: 2025Q4

REPORT INFORMATION
  Report Type: Spontaneous
  Country: US (occurrence: US)
  Receive Date: 20251210
  Receipt Date: 20251210
  Transmission Date: 20260118
  Serious: Yes (Other)
  Sender: AMGEN
  Company Number: US-AMGEN-USASP2025238925

PATIENT
  Age: 59 Year
  Sex: Female

DRUGS (1)
  1. PREDNISONE [Suspect]
     Active Substance: PREDNISONE
     Indication: Arthritis
     Dosage: 40 MILLIGRAM, QD, TAPERED DOSE
     Route: 065

REACTIONS (8)
  - Streptococcal bacteraemia [Unknown]
  - Osteomyelitis [Unknown]
  - Infective tenosynovitis [Unknown]
  - Oedema [Unknown]
  - Bone marrow oedema [Unknown]
  - Joint effusion [Unknown]
  - Uterine prolapse [Unknown]
  - Drug ineffective [Unknown]
